FAERS Safety Report 4765595-7 (Version None)
Quarter: 2005Q3

REPORT INFORMATION
  Report Type: 
  Country: None (occurrence: None)
  Receive Date: 20050908
  Receipt Date: 20050908
  Transmission Date: 20060218
  Serious: No
  Sender: FDA-Public Use
  Company Number: None

PATIENT
  Age: 63 Year
  Sex: Female

DRUGS (6)
  1. THEOPHYLLINE-SR [Suspect]
     Indication: ASTHMA
     Dosage: TAKE 1 TABLET DAILY
  2. THEOPHYLLINE-SR [Suspect]
     Indication: CHRONIC OBSTRUCTIVE PULMONARY DISEASE
     Dosage: TAKE 1 TABLET DAILY
  3. DIOVAN [Concomitant]
  4. ASACOL [Concomitant]
  5. CALCIUM GLUCONATE [Concomitant]
  6. CENTRUM [Concomitant]

REACTIONS (2)
  - PHARMACEUTICAL PRODUCT COMPLAINT [None]
  - RESPIRATORY DISORDER [None]
